FAERS Safety Report 5995048-X (Version None)
Quarter: 2008Q4

REPORT INFORMATION
  Report Type: 
  Country: None (occurrence: None)
  Receive Date: 20081212
  Receipt Date: 20080923
  Transmission Date: 20090506
  Serious: No
  Sender: FDA-Public Use
  Company Number: US-ABBOTT-08P-163-0477869-00

PATIENT
  Sex: Female
  Weight: 97.156 kg

DRUGS (30)
  1. HUMIRA [Suspect]
     Indication: RHEUMATOID ARTHRITIS
     Route: 058
     Dates: start: 20060101
  2. METHOTREXATE [Concomitant]
     Indication: RHEUMATOID ARTHRITIS
     Dosage: USES DOSE MEANT FOR IV AND DRINKS IT WITH JUICE
     Route: 048
     Dates: start: 20060101
  3. METOPROLOL SUCCINATE [Concomitant]
     Indication: HYPERTENSION
     Route: 048
     Dates: start: 20050101
  4. DIOVAN HCT [Concomitant]
     Indication: HYPERTENSION
     Dosage: 160/12.5MG DAILY
     Route: 048
     Dates: start: 20050101
  5. ATORVASTATIN CALCIUM [Concomitant]
     Indication: BLOOD CHOLESTEROL INCREASED
     Route: 048
     Dates: start: 20050101
  6. LANSOPRAZOLE [Concomitant]
     Indication: GASTROOESOPHAGEAL REFLUX DISEASE
     Route: 048
     Dates: start: 19930101
  7. LANSOPRAZOLE [Concomitant]
     Indication: HIATUS HERNIA
  8. ACETYLSALICYLIC ACID SRT [Concomitant]
     Indication: ANTIPLATELET THERAPY
     Route: 048
     Dates: start: 20050101
  9. CLOPIDOGREL [Concomitant]
     Indication: ANTICOAGULANT THERAPY
     Route: 048
     Dates: start: 20050101
  10. MECIZINE [Concomitant]
     Indication: VERTIGO
     Route: 048
     Dates: start: 19880101
  11. PREDNISONE TAB [Concomitant]
     Indication: RHEUMATOID ARTHRITIS
     Route: 048
     Dates: start: 20050101
  12. FOLIC ACID [Concomitant]
     Indication: VITAMIN SUPPLEMENTATION
     Route: 048
     Dates: start: 20060101
  13. ACTIFED-A [Concomitant]
     Indication: OSTEOPOROSIS
     Route: 048
     Dates: start: 19930101
  14. FLUTICASONE PROPIONATE [Concomitant]
     Indication: HYPERSENSITIVITY
     Dosage: AS REQUIRED
     Route: 045
     Dates: start: 19930101
  15. FLUTICASONE PROPIONATE [Concomitant]
     Indication: ASTHMA
  16. FLUTICASONE PROPIONATE [Concomitant]
     Indication: CHRONIC OBSTRUCTIVE PULMONARY DISEASE
  17. FLUTICASONE PROPIONATE [Concomitant]
     Indication: BRONCHITIS CHRONIC
  18. FLUTICASONE PROPIONATE [Concomitant]
     Indication: ANTIINFLAMMATORY THERAPY
     Route: 055
     Dates: start: 19980101
  19. FLUTICASONE PROPIONATE [Concomitant]
  20. FLUTICASONE PROPIONATE [Concomitant]
  21. FLUTICASONE PROPIONATE [Concomitant]
  22. BREVA [Concomitant]
     Indication: ANTIINFLAMMATORY THERAPY
     Route: 055
     Dates: start: 19980101
  23. BREVA [Concomitant]
     Indication: ASTHMA
  24. BREVA [Concomitant]
     Indication: CHRONIC OBSTRUCTIVE PULMONARY DISEASE
  25. LORAZEPAM [Concomitant]
     Indication: ANXIETY
     Route: 048
     Dates: start: 19960101
  26. NORCO-10 [Concomitant]
     Indication: PAIN
     Dosage: 2 TABLETS IN AM AND 2 TABLETS IN PM
     Route: 048
     Dates: start: 20060101
  27. CORTISONE ACETATE TAB [Concomitant]
     Indication: RHEUMATOID ARTHRITIS
  28. LEVOSALBUTAMOL [Concomitant]
     Indication: ASTHMA
     Dosage: 1.25MG/3MG - USE IN AM AND PM
  29. LEVOSALBUTAMOL [Concomitant]
     Indication: CHRONIC OBSTRUCTIVE PULMONARY DISEASE
  30. LEVOSALBUTAMOL [Concomitant]
     Indication: BRONCHITIS CHRONIC

REACTIONS (7)
  - DYSPNOEA [None]
  - MALAISE [None]
  - PRODUCTIVE COUGH [None]
  - RESPIRATORY DISORDER [None]
  - SPUTUM DISCOLOURED [None]
  - UPPER RESPIRATORY TRACT INFECTION [None]
  - WHEEZING [None]
